FAERS Safety Report 22352412 (Version 2)
Quarter: 2023Q2

REPORT INFORMATION
  Report Type: Spontaneous
  Country: US (occurrence: US)
  Receive Date: 20230522
  Receipt Date: 20230628
  Transmission Date: 20230721
  Serious: No
  Sender: FDA-Public Use
  Company Number: US-ALKERMES INC.-ALK-2023-002087

PATIENT
  Age: 57 Year
  Sex: Female
  Weight: 58.957 kg

DRUGS (1)
  1. LYBALVI [Suspect]
     Active Substance: OLANZAPINE\SAMIDORPHAN L-MALATE
     Indication: Affective disorder
     Dosage: 5/10 MILLIGRAM, QD
     Route: 048
     Dates: start: 20230516, end: 20230601

REACTIONS (2)
  - Urinary retention [Recovered/Resolved]
  - Off label use [Recovered/Resolved]

NARRATIVE: CASE EVENT DATE: 20230516
